FAERS Safety Report 6229922-6 (Version None)
Quarter: 2009Q2

REPORT INFORMATION
  Report Type: 
  Country: None (occurrence: None)
  Receive Date: 20090615
  Receipt Date: 20090608
  Transmission Date: 20091009
  Serious: Yes (Other)
  Sender: FDA-Public Use
  Company Number: US-ELI_LILLY_AND_COMPANY-US200906001856

PATIENT
  Age: 45 Year
  Sex: Female

DRUGS (2)
  1. BYETTA [Suspect]
  2. GLUCOPHAGE [Concomitant]

REACTIONS (1)
  - PANCREATITIS [None]
